FAERS Safety Report 8011264-X (Version None)
Quarter: 2011Q4

REPORT INFORMATION
  Report Type: 
  Country: None (occurrence: None)
  Receive Date: 20111227
  Receipt Date: 20111227
  Transmission Date: 20120403
  Serious: Yes (Other)
  Sender: FDA-Public Use
  Company Number: None

PATIENT
  Age: 41 Year
  Sex: Female
  Weight: 72.574 kg

DRUGS (2)
  1. COPAXONE [Concomitant]
     Route: 051
  2. ALCOHOL SWABS [Suspect]
     Indication: MULTIPLE SCLEROSIS
     Dates: start: 20100925, end: 20111025

REACTIONS (5)
  - APPLICATION SITE SCAB [None]
  - PRODUCT CONTAMINATION [None]
  - APPLICATION SITE RASH [None]
  - PRODUCT QUALITY ISSUE [None]
  - APPLICATION SITE HAEMATOMA [None]
